FAERS Safety Report 8856221 (Version 2)
Quarter: 2013Q3

REPORT INFORMATION
  Report Type: Spontaneous
  Country: US (occurrence: US)
  Receive Date: 20121023
  Receipt Date: 20130930
  Transmission Date: 20140515
  Serious: No
  Sender: FDA-Public Use
  Company Number: US-AMGEN-USASP2012057731

PATIENT
  Age: 55 Year
  Sex: Female
  Weight: 71.66 kg

DRUGS (5)
  1. ENBREL [Suspect]
     Indication: RHEUMATOID ARTHRITIS
     Dosage: 50 MG, QWK
     Route: 058
     Dates: start: 2006
  2. RELAFEN [Concomitant]
     Dosage: 500 MG, UNK
  3. PREDNISONE [Concomitant]
     Dosage: UNK,
  4. WOMEN^S MULTI [Concomitant]
     Dosage: UNK
  5. JUNEL FE 1.5/30 [Concomitant]
     Dosage: UNK

REACTIONS (2)
  - Drug effect decreased [Unknown]
  - Rheumatoid arthritis [Unknown]
